FAERS Safety Report 14984210 (Version 1)
Quarter: 2018Q2

REPORT INFORMATION
  Report Type: Report from Study
  Country: FR (occurrence: FR)
  Receive Date: 20180607
  Receipt Date: 20180607
  Transmission Date: 20180711
  Serious: Yes (Death, Hospitalization, Other)
  Sender: FDA-Public Use
  Company Number: FR-JAZZ-2017-FR-015421

PATIENT

DRUGS (15)
  1. COLIMYCIN                          /00013203/ [Concomitant]
     Indication: ANTIBIOTIC THERAPY
     Dosage: 250000 IU, QD
     Route: 048
     Dates: start: 20160823, end: 20160914
  2. SPASFON                            /00765801/ [Concomitant]
     Active Substance: PHLOROGLUCINOL\1,3,5-TRIMETHOXYBENZENE
     Indication: PROPHYLAXIS
     Dosage: 1 AMPULE, QD
     Route: 042
     Dates: start: 20160827
  3. CICLOSPORIN [Concomitant]
     Active Substance: CYCLOSPORINE
     Indication: PROPHYLAXIS AGAINST GRAFT VERSUS HOST DISEASE
     Dosage: 24 MG, QD
     Route: 042
     Dates: start: 20160829, end: 20161123
  4. ACICLOVIR [Concomitant]
     Active Substance: ACYCLOVIR
     Indication: ANTIVIRAL TREATMENT
     Dosage: 100 MG, QD
     Route: 048
     Dates: start: 20160831
  5. TIENAM [Concomitant]
     Active Substance: CILASTATIN SODIUM\IMIPENEM
     Indication: ANTIBIOTIC THERAPY
     Dosage: 120 MG, QD
     Route: 042
     Dates: start: 20160903, end: 20160923
  6. AMOXICILLIN. [Concomitant]
     Active Substance: AMOXICILLIN
     Indication: ANTIBIOTIC THERAPY
     Dosage: 400 MG, QD
     Route: 048
     Dates: start: 20160910, end: 20160923
  7. CAPTOPRIL. [Concomitant]
     Active Substance: CAPTOPRIL
     Indication: BLOOD PRESSURE MANAGEMENT
     Dosage: 6 MG, QD
     Route: 042
     Dates: start: 20160830, end: 20160918
  8. HEPARIN [Concomitant]
     Active Substance: HEPARIN SODIUM
     Indication: PROPHYLAXIS
     Dosage: 770 IU, QD
     Route: 042
     Dates: start: 20160823, end: 20161123
  9. ZOPHREN                            /00955301/ [Concomitant]
     Active Substance: ONDANSETRON
     Indication: ANTIEMETIC SUPPORTIVE CARE
     Dosage: 4 MG, QD
     Route: 048
     Dates: start: 20160822, end: 20161112
  10. PROSTINE [Concomitant]
     Active Substance: DINOPROSTONE
     Indication: PROPHYLAXIS
     Dosage: 65000 ?G, QD
     Route: 042
     Dates: start: 20160823, end: 20160912
  11. DEFITELIO [Suspect]
     Active Substance: DEFIBROTIDE SODIUM
     Indication: PROPHYLAXIS
     Dosage: 200 MG, QD
     Route: 042
     Dates: start: 20160912, end: 20161113
  12. LASILIX                            /00032601/ [Concomitant]
     Active Substance: FUROSEMIDE
     Indication: DIURETIC THERAPY
     Dosage: 20 MG, QD
     Route: 042
     Dates: start: 20160904
  13. FLAGYL [Concomitant]
     Active Substance: METRONIDAZOLE\METRONIDAZOLE HYDROCHLORIDE
     Indication: ANTIVIRAL TREATMENT
     Dosage: 225 MG, QD
     Route: 042
     Dates: start: 20160902, end: 20160920
  14. INEXIUM                            /01479302/ [Concomitant]
     Active Substance: ESOMEPRAZOLE MAGNESIUM
     Indication: PROPHYLAXIS AGAINST GASTROINTESTINAL ULCER
     Dosage: 10 MG, QD
     Route: 048
     Dates: start: 20160822
  15. MORPHINE [Concomitant]
     Active Substance: MORPHINE
     Indication: ANALGESIC THERAPY
     Dosage: UNK
     Route: 042
     Dates: start: 20160903

REACTIONS (7)
  - Altered state of consciousness [Fatal]
  - Acute lymphocytic leukaemia [Fatal]
  - Pneumonia herpes viral [Not Recovered/Not Resolved]
  - Enterobacter pneumonia [Unknown]
  - Blood sodium increased [Not Recovered/Not Resolved]
  - Cholangiolitis [Not Recovered/Not Resolved]
  - Fluid overload [Not Recovered/Not Resolved]

NARRATIVE: CASE EVENT DATE: 20160923
